FAERS Safety Report 4879271-3 (Version None)
Quarter: 2005Q4

REPORT INFORMATION
  Report Type: 
  Country: None (occurrence: None)
  Receive Date: 20051207
  Receipt Date: 20050111
  Transmission Date: 20060501
  Serious: Yes (Hospitalization, Other)
  Sender: FDA-Public Use
  Company Number: 2005010640

PATIENT
  Age: 56 Year
  Sex: Male

DRUGS (3)
  1. VIAGRA [Suspect]
     Indication: ERECTILE DYSFUNCTION
     Dosage: (50 MG, AS NECESSARY), ORAL
     Route: 048
  2. CAFFEINE (CAFFEINE) [Concomitant]
  3. ETHANOL (ETHANOL) [Concomitant]

REACTIONS (1)
  - CONVULSION [None]
